FAERS Safety Report 14202583 (Version 3)
Quarter: 2018Q2

REPORT INFORMATION
  Report Type: Report from Study
  Country: None (occurrence: US)
  Receive Date: 20171118
  Receipt Date: 20180502
  Transmission Date: 20180711
  Serious: Yes (Hospitalization)
  Sender: FDA-Public Use
  Company Number: US-ABBVIE-17K-163-2067227-00

PATIENT
  Sex: Female

DRUGS (4)
  1. HUMIRA [Suspect]
     Active Substance: ADALIMUMAB
     Indication: CROHN^S DISEASE
     Dosage: DAY 1
     Route: 058
     Dates: start: 20170405, end: 20170405
  2. HUMIRA [Suspect]
     Active Substance: ADALIMUMAB
     Route: 058
     Dates: start: 20170503, end: 2017
  3. HUMIRA [Suspect]
     Active Substance: ADALIMUMAB
     Dosage: DAY 15
     Route: 058
     Dates: start: 20170419, end: 20170419
  4. HUMIRA [Suspect]
     Active Substance: ADALIMUMAB
     Route: 058
     Dates: start: 201706

REACTIONS (23)
  - Anxiety [Recovering/Resolving]
  - Impaired gastric emptying [Unknown]
  - Weight decreased [Recovering/Resolving]
  - Frequent bowel movements [Recovering/Resolving]
  - Body temperature abnormal [Unknown]
  - Gastrointestinal fistula [Unknown]
  - Depressed mood [Recovering/Resolving]
  - Insomnia [Unknown]
  - Transfusion [Unknown]
  - Loss of personal independence in daily activities [Unknown]
  - Fear [Recovering/Resolving]
  - Decreased appetite [Recovering/Resolving]
  - Diarrhoea [Recovering/Resolving]
  - Abdominal pain [Unknown]
  - Pyrexia [Recovered/Resolved]
  - Full blood count decreased [Recovered/Resolved]
  - Vomiting [Recovering/Resolving]
  - Nausea [Recovering/Resolving]
  - Ileostomy [Unknown]
  - Blood potassium increased [Unknown]
  - Skin discolouration [Unknown]
  - White blood cell count decreased [Unknown]
  - Dyspnoea [Unknown]

NARRATIVE: CASE EVENT DATE: 2017
